FAERS Safety Report 10268208 (Version 1)
Quarter: 2014Q2

REPORT INFORMATION
  Report Type: Spontaneous
  Country: US (occurrence: None)
  Receive Date: 20140626
  Receipt Date: 20140626
  Transmission Date: 20141212
  Serious: Yes (Hospitalization)
  Sender: FDA-Public Use
  Company Number: None

PATIENT
  Age: 64 Year
  Sex: Male
  Weight: 92.3 kg

DRUGS (1)
  1. WARFARIN [Suspect]
     Indication: ATRIAL THROMBOSIS
     Route: 048
     Dates: start: 20100121, end: 20140618

REACTIONS (1)
  - International normalised ratio abnormal [None]
